FAERS Safety Report 8123143-8 (Version None)
Quarter: 2012Q1

REPORT INFORMATION
  Report Type: 
  Country: None (occurrence: None)
  Receive Date: 20120206
  Receipt Date: 20120124
  Transmission Date: 20120608
  Serious: Yes (Hospitalization, Other)
  Sender: FDA-Public Use
  Company Number: 2012MA001061

PATIENT
  Sex: Male
  Weight: 93.441 kg

DRUGS (21)
  1. ANTIVERT [Concomitant]
  2. COMBIVENT [Concomitant]
  3. COREG [Concomitant]
  4. DARVOCET [Concomitant]
  5. KAOPECTATE [Concomitant]
  6. LEVSIN [Concomitant]
  7. LORCET-HD [Concomitant]
  8. ZOFRAN [Concomitant]
  9. DIGOXIN [Suspect]
  10. COUMADIN [Concomitant]
  11. LASIX [Concomitant]
  12. MOTRIN [Concomitant]
  13. LUNESTA [Concomitant]
  14. SKELAXIN [Concomitant]
  15. ZITHROMAX [Concomitant]
  16. CYMBALTA [Concomitant]
  17. ENLAPRIL [Concomitant]
  18. NORFLEX [Concomitant]
  19. PHENERGAN [Concomitant]
  20. TORADOL [Concomitant]
  21. ULTRAM [Concomitant]

REACTIONS (36)
  - PNEUMOTHORAX [None]
  - CARDIAC FAILURE CONGESTIVE [None]
  - ROTATOR CUFF REPAIR [None]
  - PAIN [None]
  - PAIN IN EXTREMITY [None]
  - INTRACARDIAC THROMBUS [None]
  - DEHYDRATION [None]
  - MUSCULOSKELETAL CHEST PAIN [None]
  - VENTRICULAR EXTRASYSTOLES [None]
  - DIARRHOEA [None]
  - BACK PAIN [None]
  - CONGESTIVE CARDIOMYOPATHY [None]
  - PLEURAL EFFUSION [None]
  - DEEP VEIN THROMBOSIS [None]
  - HEART RATE IRREGULAR [None]
  - CHEST PAIN [None]
  - DYSPNOEA EXERTIONAL [None]
  - WHEEZING [None]
  - MENTAL STATUS CHANGES [None]
  - BRONCHITIS [None]
  - HYPOPNOEA [None]
  - PARAESTHESIA [None]
  - DIZZINESS [None]
  - LIGAMENT SPRAIN [None]
  - COSTOCHONDRITIS [None]
  - MUSCULOSKELETAL PAIN [None]
  - HYPOAESTHESIA [None]
  - VERTIGO [None]
  - HEADACHE [None]
  - PYREXIA [None]
  - COUGH [None]
  - GASTROENTERITIS [None]
  - ENTERITIS [None]
  - NAUSEA [None]
  - VOMITING [None]
  - BRONCHOSPASM [None]
